FAERS Safety Report 6249739-6 (Version None)
Quarter: 2009Q2

REPORT INFORMATION
  Report Type: 
  Country: None (occurrence: None)
  Receive Date: 20090625
  Receipt Date: 20090625
  Transmission Date: 20091009
  Serious: Yes (Other)
  Sender: FDA-Public Use
  Company Number: None

PATIENT
  Age: 47 Year
  Sex: Female
  Weight: 43.0917 kg

DRUGS (1)
  1. DOXYCYCLINE HYCLATE [Suspect]
     Indication: INFECTION
     Dosage: 1 CAPSULE 2 TIMES A DAY PO
     Route: 048
     Dates: start: 20090601, end: 20090611

REACTIONS (2)
  - DYSPHAGIA [None]
  - EROSIVE OESOPHAGITIS [None]
